FAERS Safety Report 20615006 (Version 1)
Quarter: 2022Q1

REPORT INFORMATION
  Report Type: Spontaneous
  Country: PR (occurrence: PR)
  Receive Date: 20220321
  Receipt Date: 20220321
  Transmission Date: 20220424
  Serious: Yes (Hospitalization, Other)
  Sender: FDA-Public Use
  Company Number: US-MERCK-1306USA009014

PATIENT
  Sex: Female
  Weight: 76.2 kg

DRUGS (5)
  1. FOSAMAX [Suspect]
     Active Substance: ALENDRONATE SODIUM
     Indication: Senile osteoporosis
     Dosage: 70 MG, QW
     Route: 048
     Dates: start: 20011023
  2. FOSAMAX [Suspect]
     Active Substance: ALENDRONATE SODIUM
     Indication: Osteopenia
     Dosage: 70 MG, QW
     Route: 048
     Dates: start: 20061023, end: 20080225
  3. ALENDRONATE SODIUM [Suspect]
     Active Substance: ALENDRONATE SODIUM
     Dosage: 70 MG, QW
     Route: 048
     Dates: start: 20080324, end: 20100730
  4. PLAQUENIL [Concomitant]
     Active Substance: HYDROXYCHLOROQUINE SULFATE
     Indication: Arthritis
     Dosage: UNK
     Route: 065
     Dates: start: 2002
  5. PREDNISONE [Concomitant]
     Active Substance: PREDNISONE
     Indication: Arthritis
     Dosage: UNK
     Route: 065
     Dates: start: 2002

REACTIONS (13)
  - Lymphoma [Unknown]
  - Femur fracture [Recovered/Resolved]
  - Low turnover osteopathy [Unknown]
  - Essential hypertension [Not Recovered/Not Resolved]
  - Tumour excision [Unknown]
  - Fall [Unknown]
  - Mucosal dryness [Unknown]
  - Dry eye [Unknown]
  - Cataract [Unknown]
  - Blood cholesterol [Not Recovered/Not Resolved]
  - Osteoarthritis [Unknown]
  - Coronary artery disease [Unknown]
  - Insomnia [Unknown]

NARRATIVE: CASE EVENT DATE: 20020101
